FAERS Safety Report 21924520 (Version 1)
Quarter: 2023Q1

REPORT INFORMATION
  Report Type: Spontaneous
  Country: US (occurrence: US)
  Receive Date: 20230130
  Receipt Date: 20230130
  Transmission Date: 20230417
  Serious: Yes (Hospitalization, Other)
  Sender: FDA-Public Use
  Company Number: US-BRISTOL-MYERS SQUIBB COMPANY-2023-012740

PATIENT
  Age: 64 Year
  Sex: Male
  Weight: 76.65 kg

DRUGS (1)
  1. REVLIMID [Suspect]
     Active Substance: LENALIDOMIDE
     Indication: Plasma cell myeloma
     Dosage: 5 MG, 14 DAYS ON 7 DAYS OFF
     Route: 048
     Dates: start: 20221201, end: 20230125

REACTIONS (2)
  - Renal disorder [Not Recovered/Not Resolved]
  - Off label use [Unknown]
